FAERS Safety Report 7591771-4 (Version None)
Quarter: 2011Q3

REPORT INFORMATION
  Report Type: 
  Country: None (occurrence: None)
  Receive Date: 20110706
  Receipt Date: 20110624
  Transmission Date: 20111222
  Serious: Yes (Hospitalization, Other)
  Sender: FDA-Public Use
  Company Number: US-BAYER-2011-004819

PATIENT
  Age: 46 Year
  Sex: Female
  Weight: 81.633 kg

DRUGS (5)
  1. CYCLOBENZAPRINE [Concomitant]
     Dosage: 10 MG, UNK
  2. YAZ [Suspect]
     Indication: MENSTRUATION IRREGULAR
     Dosage: 1 DF, QD
     Dates: start: 20081101, end: 20100801
  3. NAPROXEN [Concomitant]
     Dosage: 500 MG, UNK
  4. TRICOR [Concomitant]
     Indication: HYPERCHOLESTEROLAEMIA
     Dosage: 145 MG, UNK
  5. DROSPIRENONE AND ETHINYL ESTRADIOL [Suspect]
     Indication: PRODUCT USED FOR UNKNOWN INDICATION
     Route: 048

REACTIONS (6)
  - PAIN [None]
  - GALLBLADDER DISORDER [None]
  - INJURY [None]
  - EMOTIONAL DISTRESS [None]
  - PANCREATITIS [None]
  - CHOLECYSTITIS ACUTE [None]
